FAERS Safety Report 24884130 (Version 2)
Quarter: 2025Q1

REPORT INFORMATION
  Report Type: Spontaneous
  Country: CN (occurrence: CN)
  Receive Date: 20250124
  Receipt Date: 20250205
  Transmission Date: 20250408
  Serious: Yes (Hospitalization, Other)
  Sender: MERCK
  Company Number: CN-009507513-2501CHN005305

PATIENT
  Age: 38 Year
  Sex: Female
  Weight: 40 kg

DRUGS (8)
  1. CILASTATIN SODIUM\IMIPENEM [Suspect]
     Active Substance: CILASTATIN SODIUM\IMIPENEM
     Indication: Infection
     Dosage: 1 G Q6H
     Route: 041
     Dates: start: 20250103, end: 20250106
  2. CILASTATIN SODIUM\IMIPENEM [Suspect]
     Active Substance: CILASTATIN SODIUM\IMIPENEM
     Indication: Bronchopulmonary aspergillosis
  3. CILASTATIN SODIUM\IMIPENEM [Suspect]
     Active Substance: CILASTATIN SODIUM\IMIPENEM
     Indication: Myelodysplastic syndrome
  4. VORICONAZOLE [Suspect]
     Active Substance: VORICONAZOLE
     Indication: Infection
     Dosage: 0.4 G Q12H; FORMULATION: LYOPHILIZED POWDER
     Route: 041
     Dates: start: 20250104, end: 20250105
  5. VORICONAZOLE [Suspect]
     Active Substance: VORICONAZOLE
     Indication: Bronchopulmonary aspergillosis
     Dosage: 0.2 G Q12H; FORMULATION: LYOPHILIZED POWDER
     Route: 041
     Dates: start: 20250105, end: 20250106
  6. VORICONAZOLE [Suspect]
     Active Substance: VORICONAZOLE
     Indication: Myelodysplastic syndrome
  7. DIAZEPAM [Suspect]
     Active Substance: DIAZEPAM
     Indication: Loss of consciousness
     Route: 042
     Dates: start: 20250109
  8. DIAZEPAM [Suspect]
     Active Substance: DIAZEPAM
     Indication: Trismus

REACTIONS (14)
  - Hallucination [Unknown]
  - Hallucination, auditory [Unknown]
  - Loss of consciousness [Unknown]
  - Hepatic function abnormal [Unknown]
  - Dysphoria [Unknown]
  - Dyskinesia [Unknown]
  - Trismus [Unknown]
  - Disorganised speech [Unknown]
  - Mania [Unknown]
  - Neutrophil count decreased [Unknown]
  - Prothrombin time prolonged [Unknown]
  - Blood fibrinogen increased [Unknown]
  - Fibrin D dimer increased [Unknown]
  - Product use in unapproved indication [Unknown]

NARRATIVE: CASE EVENT DATE: 20250103
